FAERS Safety Report 5315853-2 (Version None)
Quarter: 2007Q2

REPORT INFORMATION
  Report Type: 
  Country: None (occurrence: None)
  Receive Date: 20070503
  Receipt Date: 20070430
  Transmission Date: 20071010
  Serious: Yes (Other)
  Sender: FDA-Public Use
  Company Number: US-JNJFOC-20070500489

PATIENT
  Sex: Male
  Weight: 99.79 kg

DRUGS (5)
  1. DURAGESIC-100 [Suspect]
     Indication: PAIN
     Route: 062
  2. LYRICA [Suspect]
     Indication: PERIPHERAL VASCULAR DISORDER
     Route: 048
  3. MONOPRIL [Concomitant]
     Indication: DIABETES MELLITUS
     Route: 048
  4. GLUCOVANCE [Concomitant]
     Indication: DIABETES MELLITUS
     Dosage: 5/500
     Route: 048
  5. METOCLOPRAMIDE [Concomitant]
     Indication: DIABETES MELLITUS
     Route: 048

REACTIONS (11)
  - ARTHROPATHY [None]
  - BLOOD CHOLESTEROL INCREASED [None]
  - DYSKINESIA [None]
  - EMOTIONAL DISTRESS [None]
  - HYPOAESTHESIA [None]
  - INCORRECT DRUG ADMINISTRATION DURATION [None]
  - INSOMNIA [None]
  - MUSCLE SPASMS [None]
  - POOR PERIPHERAL CIRCULATION [None]
  - SUICIDAL IDEATION [None]
  - WRONG TECHNIQUE IN DRUG USAGE PROCESS [None]
